FAERS Safety Report 4646901-0 (Version None)
Quarter: 2005Q2

REPORT INFORMATION
  Report Type: 
  Country: None (occurrence: None)
  Receive Date: 20050427
  Receipt Date: 20050414
  Transmission Date: 20051028
  Serious: Yes (Congenital Anomaly)
  Sender: FDA-Public Use
  Company Number: KR-MERCK-0504KOR00013

PATIENT
  Sex: Male

DRUGS (1)
  1. PROSCAR [Suspect]

REACTIONS (1)
  - CONGENITAL GENITOURINARY ABNORMALITY [None]
